FAERS Safety Report 21952155 (Version 1)
Quarter: 2023Q1

REPORT INFORMATION
  Report Type: Spontaneous
  Country: US (occurrence: US)
  Receive Date: 20230203
  Receipt Date: 20230203
  Transmission Date: 20230418
  Serious: No
  Sender: FDA-Public Use
  Company Number: US-PFIZER INC-202300047484

PATIENT
  Age: 52 Year
  Sex: Female
  Weight: 92.99 kg

DRUGS (4)
  1. BRAFTOVI [Suspect]
     Active Substance: ENCORAFENIB
     Indication: Metastatic malignant melanoma
     Dosage: 300 MG, DAILY (75 MG. FOUR CAPSULES DAILY)
     Route: 048
     Dates: start: 20230127
  2. CLARITIN [Concomitant]
     Active Substance: LORATADINE
     Indication: Hypersensitivity
     Dosage: 10 MG, DAILY
     Route: 048
  3. FOLIC ACID [Concomitant]
     Active Substance: FOLIC ACID
     Dosage: 1 MG, 1X/DAY
     Dates: start: 202211
  4. METHOTREXATE [Concomitant]
     Active Substance: METHOTREXATE
     Dosage: 2.5 TABLETS

REACTIONS (8)
  - Neoplasm progression [Unknown]
  - Nausea [Recovering/Resolving]
  - Rash erythematous [Recovering/Resolving]
  - Abdominal discomfort [Unknown]
  - Illness [Unknown]
  - Insomnia [Unknown]
  - Malaise [Unknown]
  - Intentional product misuse [Unknown]

NARRATIVE: CASE EVENT DATE: 20230127
